FAERS Safety Report 17185075 (Version 1)
Quarter: 2019Q4

REPORT INFORMATION
  Report Type: Spontaneous
  Country: US (occurrence: US)
  Receive Date: 20191219
  Receipt Date: 20191219
  Transmission Date: 20200122
  Serious: No
  Sender: FDA-Public Use
  Company Number: None

PATIENT
  Age: 62 Year
  Sex: Male
  Weight: 90 kg

DRUGS (20)
  1. MULTI-VITAMIN [Concomitant]
     Active Substance: .ALPHA.-TOCOPHEROL ACETATE, DL-\ASCORBIC ACID\CYANOCOBALAMIN\FLUORIDE ION\FOLIC ACID\NIACIN\PYRIDOXINE\RIBOFLAVIN\THIAMINE\VITAMIN A\VITAMIN D
  2. CONDROITIN SULFATE [Concomitant]
  3. MAGNESIUM SULFATE. [Concomitant]
     Active Substance: MAGNESIUM SULFATE
  4. PROSTATE SUPPLEMENT [Concomitant]
  5. ADRENAL SUPPLEMENT [Concomitant]
  6. RABEPRAZOLE 20 MG [Suspect]
     Active Substance: RABEPRAZOLE
     Indication: GASTROOESOPHAGEAL REFLUX DISEASE
     Dosage: ?          QUANTITY:1 TABLET(S);?
     Route: 048
     Dates: start: 20190301, end: 20190801
  7. VITAMIN B COMPLEX [Concomitant]
     Active Substance: CYANOCOBALAMIN\DEXPANTHENOL\NIACINAMIDE\PYRIDOXINE HYDROCHLORIDE\RIBOFLAVIN 5^-PHOSPHATE SODIUM\THIAMINE HYDROCHLORIDE\VITAMIN B COMPLEX
  8. HYALURONIC ACID [Concomitant]
     Active Substance: HYALURONIC ACID
  9. ASHWAGANDA [Concomitant]
  10. MSM [Concomitant]
     Active Substance: DIMETHYL SULFONE
  11. OMEGA FISH OIL [Concomitant]
     Active Substance: FISH OIL\OMEGA-3 FATTY ACIDS
  12. PHYTOSERAMIDE [Concomitant]
  13. COLLAGEN PEPTIDES [Concomitant]
  14. ACIPHEX [Concomitant]
     Active Substance: RABEPRAZOLE SODIUM
  15. VITAMIN B12 [Concomitant]
     Active Substance: CYANOCOBALAMIN
  16. GLUCOSAMINE [Concomitant]
     Active Substance: GLUCOSAMINE
  17. UBIQUINOL [Concomitant]
     Active Substance: UBIQUINOL
  18. CURCUMIN [Concomitant]
     Active Substance: CURCUMIN
  19. ALPHA LIPOIC ACID [Concomitant]
     Active Substance: .ALPHA.-LIPOIC ACID
  20. PSYLLIUM HUSK. [Concomitant]
     Active Substance: PSYLLIUM HUSK

REACTIONS (3)
  - Product substitution issue [None]
  - Therapeutic response changed [None]
  - Abdominal pain upper [None]

NARRATIVE: CASE EVENT DATE: 20190301
